FAERS Safety Report 5861109-9 (Version None)
Quarter: 2008Q3

REPORT INFORMATION
  Report Type: 
  Country: None (occurrence: None)
  Receive Date: 20080827
  Receipt Date: 20080222
  Transmission Date: 20090109
  Serious: No
  Sender: FDA-Public Use
  Company Number: US-ABBOTT-08P-163-0439587-00

PATIENT
  Sex: Female

DRUGS (2)
  1. NIASPAN [Suspect]
     Indication: BLOOD TRIGLYCERIDES INCREASED
     Route: 048
     Dates: start: 20070701
  2. NIASPAN [Suspect]
     Indication: HYPERLIPIDAEMIA

REACTIONS (2)
  - FLUSHING [None]
  - NEUROPATHY PERIPHERAL [None]
